FAERS Safety Report 9969298 (Version 3)
Quarter: 2014Q2

REPORT INFORMATION
  Report Type: Spontaneous
  Country: US (occurrence: US)
  Receive Date: 20140306
  Receipt Date: 20140404
  Transmission Date: 20141212
  Serious: No
  Sender: FDA-Public Use
  Company Number: US-BIOGENIDEC-2014BI018308

PATIENT
  Age: 50 Year
  Sex: Female

DRUGS (5)
  1. TECFIDERA [Suspect]
     Indication: MULTIPLE SCLEROSIS
     Dates: start: 201402
  2. TECFIDERA [Suspect]
     Indication: MULTIPLE SCLEROSIS
     Dates: start: 20140215
  3. TECFIDERA [Suspect]
     Indication: MULTIPLE SCLEROSIS
     Dates: start: 20140215
  4. AMPYRA [Concomitant]
  5. ADERALL [Concomitant]

REACTIONS (4)
  - Urticaria [Unknown]
  - Sinusitis [Unknown]
  - Pruritus [Unknown]
  - Dermatitis bullous [Not Recovered/Not Resolved]
